FAERS Safety Report 16879924 (Version 2)
Quarter: 2019Q4

REPORT INFORMATION
  Report Type: Spontaneous
  Country: US (occurrence: US)
  Receive Date: 20191003
  Receipt Date: 20191212
  Transmission Date: 20200122
  Serious: Yes (Hospitalization)
  Sender: FDA-Public Use
  Company Number: US-BIOGEN-2019BI00788988

PATIENT
  Age: 12 Year
  Sex: Female

DRUGS (3)
  1. PLEGRIDY [Suspect]
     Active Substance: PEGINTERFERON BETA-1A
  2. PLEGRIDY [Suspect]
     Active Substance: PEGINTERFERON BETA-1A
     Indication: MULTIPLE SCLEROSIS
     Route: 058
     Dates: start: 20190614
  3. IBUPROFEN. [Concomitant]
     Active Substance: IBUPROFEN
     Indication: PRODUCT USED FOR UNKNOWN INDICATION
     Route: 065

REACTIONS (5)
  - Urinary tract infection [Unknown]
  - Multiple sclerosis relapse [Not Recovered/Not Resolved]
  - Off label use [Not Recovered/Not Resolved]
  - Pyrexia [Recovered/Resolved]
  - Therapy non-responder [Unknown]

NARRATIVE: CASE EVENT DATE: 201909
